FAERS Safety Report 10578368 (Version 1)
Quarter: 2014Q4

REPORT INFORMATION
  Report Type: Spontaneous
  Country: BR (occurrence: BR)
  Receive Date: 20141112
  Receipt Date: 20141112
  Transmission Date: 20150529
  Serious: Yes (Other)
  Sender: FDA-Public Use
  Company Number: PHHY2014BR147036

PATIENT
  Sex: Female

DRUGS (2)
  1. EXELON [Suspect]
     Active Substance: RIVASTIGMINE TARTRATE
     Indication: PRODUCT USED FOR UNKNOWN INDICATION
     Dosage: UNK, QD (UNKNOWN DOSE (FORMULATION 1.5 MG) IN THE MORNING)
     Route: 065
  2. EXELON [Suspect]
     Active Substance: RIVASTIGMINE TARTRATE
     Dosage: UNK, QHS (UNKNOWN DOSE (FORMULATION 3 MG) AT NIGHT)
     Route: 065

REACTIONS (2)
  - Dementia Alzheimer^s type [Unknown]
  - Condition aggravated [Unknown]
